FAERS Safety Report 10252031 (Version 1)
Quarter: 2014Q2

REPORT INFORMATION
  Report Type: Spontaneous
  Country: VE (occurrence: VE)
  Receive Date: 20140623
  Receipt Date: 20140623
  Transmission Date: 20141212
  Serious: Yes (Hospitalization)
  Sender: FDA-Public Use
  Company Number: PHHY2014VE076729

PATIENT
  Sex: Female

DRUGS (3)
  1. DIOVAN HCT [Suspect]
     Indication: HYPERTENSION
     Dosage: 320/12.5 MG, DAILY
     Route: 048
     Dates: start: 201401, end: 20140601
  2. MULTIVITAMIN//VITAMINS NOS [Concomitant]
     Dosage: UNK
  3. GLUCOFAGE [Concomitant]
     Dosage: UNK

REACTIONS (2)
  - Mood altered [Recovering/Resolving]
  - Blood pressure inadequately controlled [Recovering/Resolving]
